FAERS Safety Report 23399658 (Version 2)
Quarter: 2024Q1

REPORT INFORMATION
  Report Type: Report from Study
  Country: HR (occurrence: HR)
  Receive Date: 20240113
  Receipt Date: 20240307
  Transmission Date: 20240410
  Serious: Yes (Hospitalization)
  Sender: FDA-Public Use
  Company Number: HR-TEVA-VS-3134408

PATIENT

DRUGS (6)
  1. DOXORUBICIN [Suspect]
     Active Substance: DOXORUBICIN
     Indication: Diffuse large B-cell lymphoma
     Dosage: DA-EPOCH-R REGIMEN: ADMINISTERED ON DAYS 1-4; SCHEDULED TO RECEIVE 6-8 CYCLES EVERY 3 WEEKS
     Route: 041
  2. PREDNISONE [Suspect]
     Active Substance: PREDNISONE
     Indication: Diffuse large B-cell lymphoma
     Dosage: DA-EPOCH-R REGIMEN: ADMINISTERED ON DAYS 1-5; SCHEDULED TO RECEIVE 6-8 CYCLES EVERY 3 WEEKS
     Route: 065
  3. RITUXIMAB [Suspect]
     Active Substance: RITUXIMAB
     Indication: Diffuse large B-cell lymphoma
     Dosage: DA-EPOCH-R REGIMEN: ADMINISTERED ONCE PER CYCLE; SCHEDULED TO RECEIVE 6-8 CYCLES EVERY 3 WEEKS
     Route: 065
  4. CYCLOPHOSPHAMIDE [Suspect]
     Active Substance: CYCLOPHOSPHAMIDE
     Indication: Diffuse large B-cell lymphoma
     Dosage: DA-EPOCH-R REGIMEN: ADMINISTERED ON DAY 5; SCHEDULED TO RECEIVE 6-8 CYCLES EVERY 3 WEEKS
     Route: 065
  5. VINCRISTINE [Suspect]
     Active Substance: VINCRISTINE
     Indication: Diffuse large B-cell lymphoma
     Dosage: DA-EPOCH-R REGIMEN: ADMINISTERED ON DAYS 1-4; SCHEDULED TO RECEIVE 6-8 CYCLES EVERY 3 WEEKS
     Route: 041
  6. ETOPOSIDE [Suspect]
     Active Substance: ETOPOSIDE
     Indication: Diffuse large B-cell lymphoma
     Dosage: DA-EPOCH-R REGIMEN: ADMINISTERED ON DAYS 1-4; SCHEDULED TO RECEIVE 6-8 CYCLES EVERY 3 WEEKS
     Route: 041

REACTIONS (1)
  - Neoplasm [Unknown]
